FAERS Safety Report 11473340 (Version 1)
Quarter: 2015Q3

REPORT INFORMATION
  Report Type: Spontaneous
  Country: US (occurrence: US)
  Receive Date: 20150908
  Receipt Date: 20150908
  Transmission Date: 20151125
  Serious: Yes (Other)
  Sender: FDA-Public Use
  Company Number: US-JAZZ-2015-US-004375

PATIENT
  Sex: Female

DRUGS (2)
  1. XYREM [Suspect]
     Active Substance: SODIUM OXYBATE
     Indication: INSOMNIA
  2. XYREM [Suspect]
     Active Substance: SODIUM OXYBATE
     Indication: NARCOLEPSY
     Dosage: UNKNOWN DOSE

REACTIONS (11)
  - Drug dependence [Unknown]
  - Intentional overdose [Unknown]
  - Drug abuse [Unknown]
  - Anxiety [Unknown]
  - Suicidal ideation [Unknown]
  - Vomiting [Unknown]
  - Drug tolerance [Unknown]
  - Nausea [Unknown]
  - Hyperhidrosis [Unknown]
  - Unevaluable event [Unknown]
  - Somnolence [Unknown]
